FAERS Safety Report 8953978 (Version 1)
Quarter: 2012Q4

REPORT INFORMATION
  Report Type: 
  Country: FR (occurrence: US)
  Receive Date: 20121206
  Receipt Date: 20121206
  Transmission Date: 20130627
  Serious: No
  Sender: FDA-Public Use
  Company Number: US-009507513-1212USA000939

PATIENT
  Age: 81 Year
  Sex: Male

DRUGS (9)
  1. MIRTAZAPINE [Suspect]
     Indication: DEPRESSION
     Dosage: UNK
     Route: 048
     Dates: start: 20121105
  2. ALLEGRA [Suspect]
     Indication: HYPERSENSITIVITY
     Dosage: 180 mg, qd
     Route: 048
     Dates: start: 20121112
  3. ASPIRIN [Concomitant]
     Dosage: UNK
  4. OMEPRAZOLE [Concomitant]
     Dosage: UNK
  5. NAMENDA [Concomitant]
     Dosage: UNK
  6. OMEGA-3 MARINE TRIGLYCERIDES [Concomitant]
     Dosage: UNK
  7. VITAMIN D (UNSPECIFIED) [Concomitant]
     Dosage: UNK
  8. FERREX [Concomitant]
     Dosage: UNK
  9. VITAMINS (UNSPECIFIED) [Suspect]
     Dosage: UNK

REACTIONS (1)
  - Hypersomnia [Not Recovered/Not Resolved]
